FAERS Safety Report 18415649 (Version 1)
Quarter: 2020Q4

REPORT INFORMATION
  Report Type: Spontaneous
  Country: FR (occurrence: FR)
  Receive Date: 20201022
  Receipt Date: 20201022
  Transmission Date: 20210114
  Serious: Yes (Other)
  Sender: FDA-Public Use
  Company Number: FR-PFIZER INC-2020406060

PATIENT
  Age: 44 Year
  Sex: Male

DRUGS (2)
  1. OXALIPLATIN. [Suspect]
     Active Substance: OXALIPLATIN
     Indication: GALLBLADDER CANCER
     Dosage: 162 MG, 1X/DAY
     Route: 042
     Dates: start: 20200424, end: 20200424
  2. GEMCITABINE HYDROCHLORIDE. [Suspect]
     Active Substance: GEMCITABINE HYDROCHLORIDE
     Indication: GALLBLADDER CANCER
     Dosage: 1620 MG, 1X/DAY
     Route: 042
     Dates: start: 20200424, end: 20200424

REACTIONS (4)
  - Hepatocellular injury [Recovering/Resolving]
  - Product use in unapproved indication [Unknown]
  - Cholestasis [Recovering/Resolving]
  - Off label use [Unknown]

NARRATIVE: CASE EVENT DATE: 20200424
